FAERS Safety Report 13690835 (Version 2)
Quarter: 2017Q2

REPORT INFORMATION
  Report Type: Spontaneous
  Country: US (occurrence: US)
  Receive Date: 20170626
  Receipt Date: 20170630
  Transmission Date: 20170830
  Serious: No
  Sender: FDA-Public Use
  Company Number: US-BAYER-2017-122382

PATIENT
  Sex: Female

DRUGS (1)
  1. DROSPIRENONE+ETHINYLESTRADIOL+L-5-METHYLTETRAHYDROFOLIC ACID-CA SA [Suspect]
     Active Substance: DROSPIRENONE\ETHINYL ESTRADIOL\LEVOMEFOLATE CALCIUM
     Route: 048

REACTIONS (1)
  - Acne [Not Recovered/Not Resolved]
